FAERS Safety Report 14432346 (Version 4)
Quarter: 2018Q2

REPORT INFORMATION
  Report Type: Report from Study
  Country: CA (occurrence: CA)
  Receive Date: 20180124
  Receipt Date: 20180612
  Transmission Date: 20180711
  Serious: Yes (Other)
  Sender: FDA-Public Use
  Company Number: CA-JNJFOC-20180122721

PATIENT
  Age: 10 Year
  Sex: Male
  Weight: 44.7 kg

DRUGS (6)
  1. REMICADE [Suspect]
     Active Substance: INFLIXIMAB
     Indication: COLITIS ULCERATIVE
     Route: 042
     Dates: start: 20171208
  2. REMICADE [Suspect]
     Active Substance: INFLIXIMAB
     Indication: COLITIS ULCERATIVE
     Route: 042
  3. REMICADE [Suspect]
     Active Substance: INFLIXIMAB
     Indication: COLITIS ULCERATIVE
     Dosage: STRENGTH = 100 MG??ALSO REPORTED AS 5 MG/KG
     Route: 042
  4. REMICADE [Suspect]
     Active Substance: INFLIXIMAB
     Indication: COLITIS ULCERATIVE
     Route: 042
     Dates: start: 20180117
  5. REMICADE [Suspect]
     Active Substance: INFLIXIMAB
     Indication: COLITIS ULCERATIVE
     Route: 042
     Dates: start: 20180220
  6. REMICADE [Suspect]
     Active Substance: INFLIXIMAB
     Indication: COLITIS ULCERATIVE
     Dosage: ALSO REPORTED AS 6.58 MG/KG
     Route: 042

REACTIONS (11)
  - Fall [Unknown]
  - Drug level above therapeutic [Unknown]
  - General physical health deterioration [Unknown]
  - Drug effect decreased [Unknown]
  - Migraine [Unknown]
  - Off label use [Unknown]
  - Product use issue [Unknown]
  - Colitis ulcerative [Not Recovered/Not Resolved]
  - Headache [Unknown]
  - Nausea [Unknown]
  - Drug level decreased [Unknown]

NARRATIVE: CASE EVENT DATE: 20180116
